FAERS Safety Report 8904201 (Version 2)
Quarter: 2012Q4

REPORT INFORMATION
  Report Type: 
  Country: GB (occurrence: GB)
  Receive Date: 20121113
  Receipt Date: 20121121
  Transmission Date: 20130627
  Serious: Yes (Other)
  Sender: FDA-Public Use
  Company Number: GB-TEVA-368019ISR

PATIENT
  Age: 83 Year

DRUGS (8)
  1. OLANZAPINE [Suspect]
  2. CIPROFLOXACIN [Concomitant]
     Indication: URINARY TRACT INFECTION
     Route: 048
  3. MACROGOL [Concomitant]
     Dosage: 1 bd
     Route: 048
  4. OMEPRAZOLE [Concomitant]
     Dosage: 20mg od
  5. SALBUTAMOL [Concomitant]
     Dosage: 2 puffs qds
     Route: 055
  6. TIOTROPIUM BROMIDE [Concomitant]
     Dosage: mane
     Route: 050
  7. PARACETAMOL [Concomitant]
     Dosage: 2 x 500mg tabs four times a day when necessary
  8. NUTRITIONAL SUPPLEMENT [Concomitant]
     Dosage: 1gram prn (when necessary)

REACTIONS (5)
  - Parkinsonism [Not Recovered/Not Resolved]
  - Extrapyramidal disorder [Not Recovered/Not Resolved]
  - Tardive dyskinesia [Not Recovered/Not Resolved]
  - Athetosis [Not Recovered/Not Resolved]
  - Muscle atrophy [Not Recovered/Not Resolved]
